FAERS Safety Report 6490515-7 (Version None)
Quarter: 2009Q4

REPORT INFORMATION
  Report Type: 
  Country: None (occurrence: None)
  Receive Date: 20091208
  Receipt Date: 20091119
  Transmission Date: 20100525
  Serious: Yes (Other)
  Sender: FDA-Public Use
  Company Number: 8054948

PATIENT
  Age: 53 Year
  Sex: Male

DRUGS (2)
  1. KEPPRA [Suspect]
     Indication: NEUROSURGERY
     Dosage: 1000 MG 2/D IV
     Route: 042
     Dates: start: 20091119
  2. D5 WITH THIAMINE [Concomitant]

REACTIONS (3)
  - BLISTER [None]
  - INFUSION SITE EXTRAVASATION [None]
  - SECRETION DISCHARGE [None]
